FAERS Safety Report 5315618-1 (Version None)
Quarter: 2007Q2

REPORT INFORMATION
  Report Type: 
  Country: None (occurrence: None)
  Receive Date: 20070503
  Receipt Date: 20070423
  Transmission Date: 20071010
  Serious: Yes (Hospitalization, Disabling)
  Sender: FDA-Public Use
  Company Number: 2007AP02319

PATIENT
  Age: 25744 Day
  Sex: Female
  Weight: 48 kg

DRUGS (9)
  1. CRESTOR [Suspect]
     Indication: HYPERLIPIDAEMIA
     Route: 048
     Dates: start: 20070217, end: 20070410
  2. NU-LOTAN [Concomitant]
     Indication: HYPERTENSION
     Route: 048
     Dates: start: 20060919, end: 20070410
  3. SEDEKOPAN [Concomitant]
     Indication: INSOMNIA
     Route: 048
     Dates: start: 20060919, end: 20070410
  4. SEDEKOPAN [Concomitant]
     Indication: ANXIETY
     Route: 048
     Dates: start: 20060919, end: 20070410
  5. AMOXAN [Concomitant]
     Indication: DEPRESSION
     Route: 048
  6. SULPIRIDE [Concomitant]
     Indication: DEPRESSION
     Route: 048
  7. UNKNOWN DRUG [Concomitant]
     Indication: DEPRESSION
  8. MEVALOTIN [Concomitant]
  9. LIPITOR [Concomitant]
     Dates: start: 20050606, end: 20060519

REACTIONS (2)
  - PARKINSONISM [None]
  - RHABDOMYOLYSIS [None]
